FAERS Safety Report 5334750-X (Version None)
Quarter: 2007Q2

REPORT INFORMATION
  Report Type: 
  Country: None (occurrence: None)
  Receive Date: 20070525
  Receipt Date: 20070518
  Transmission Date: 20071010
  Serious: Yes (Hospitalization)
  Sender: FDA-Public Use
  Company Number: IN-BRISTOL-MYERS SQUIBB COMPANY-13788831

PATIENT
  Age: 46 Year
  Sex: Male

DRUGS (5)
  1. METFORMIN HCL [Suspect]
     Indication: DIABETES MELLITUS
     Route: 048
     Dates: start: 20060713
  2. BLINDED: LIRAGLUTIDE [Suspect]
     Indication: DIABETES MELLITUS
     Dates: start: 20060804
  3. BLINDED: PLACEBO [Suspect]
     Indication: DIABETES MELLITUS
     Dates: start: 20060804
  4. AMARYL [Suspect]
     Dates: start: 20060713
  5. ASPIRIN [Concomitant]
     Dates: start: 20060615

REACTIONS (1)
  - GASTROENTERITIS [None]
